FAERS Safety Report 6055781-0 (Version None)
Quarter: 2009Q1

REPORT INFORMATION
  Report Type: 
  Country: None (occurrence: None)
  Receive Date: 20090128
  Receipt Date: 20090119
  Transmission Date: 20090719
  Serious: Yes (Other)
  Sender: FDA-Public Use
  Company Number: US-ELI_LILLY_AND_COMPANY-US200812000930

PATIENT
  Sex: Male
  Weight: 58.957 kg

DRUGS (2)
  1. STRATTERA [Suspect]
     Indication: INSOMNIA
     Dosage: 40 MG, AS NEEDED
     Route: 048
     Dates: start: 20080701, end: 20080715
  2. METHYLPHENIDATE HCL [Concomitant]
     Indication: ATTENTION DEFICIT/HYPERACTIVITY DISORDER
     Dosage: 40 MG, DAILY (1/D)
     Route: 062
     Dates: start: 20080125

REACTIONS (11)
  - ABDOMINAL DISCOMFORT [None]
  - ASTHENIA [None]
  - DEHYDRATION [None]
  - DELIRIUM [None]
  - DIZZINESS [None]
  - FLUID IMBALANCE [None]
  - HEART RATE DECREASED [None]
  - HYPOTENSION [None]
  - INCOHERENT [None]
  - PRURITUS [None]
  - SYNCOPE [None]
